FAERS Safety Report 25548633 (Version 2)
Quarter: 2025Q3

REPORT INFORMATION
  Report Type: Spontaneous
  Country: EU (occurrence: EU)
  Receive Date: 20250714
  Receipt Date: 20250731
  Transmission Date: 20251021
  Serious: Yes (Hospitalization)
  Sender: BAYER HEALTHCARE PHARMACEUTICALS INC.
  Company Number: None

PATIENT
  Age: 60 Year
  Sex: Male

DRUGS (5)
  1. CIPROFLOXACIN [Suspect]
     Active Substance: CIPROFLOXACIN
     Indication: Duodenal ulcer haemorrhage
     Route: 042
     Dates: start: 20250601, end: 20250604
  2. CIPROFLOXACIN [Concomitant]
     Active Substance: CIPROFLOXACIN
     Indication: Duodenal ulcer haemorrhage
     Dosage: 500 MG, QD
     Route: 048
     Dates: start: 20250606, end: 20250614
  3. PANTOPRAZOLE SODIUM [Concomitant]
     Active Substance: PANTOPRAZOLE SODIUM
     Indication: Duodenal ulcer haemorrhage
     Dosage: 100 MG, QD
     Route: 042
     Dates: start: 20250531, end: 20250604
  4. Isolyte [Concomitant]
     Indication: Duodenal ulcer haemorrhage
     Route: 042
     Dates: start: 20250531, end: 20250614
  5. ACETAMINOPHEN [Concomitant]
     Active Substance: ACETAMINOPHEN
     Indication: Pain
     Dosage: 1000 MG, QD
     Route: 042
     Dates: start: 20250531, end: 20250605

REACTIONS (4)
  - Peripheral swelling [Recovering/Resolving]
  - Pain in extremity [Recovering/Resolving]
  - Flushing [Recovering/Resolving]
  - Superficial vein thrombosis [Recovering/Resolving]

NARRATIVE: CASE EVENT DATE: 20250604
